FAERS Safety Report 16134564 (Version 1)
Quarter: 2019Q1

REPORT INFORMATION
  Report Type: Spontaneous
  Country: DE (occurrence: DE)
  Receive Date: 20190329
  Receipt Date: 20190329
  Transmission Date: 20190418
  Serious: Yes (Hospitalization, Other)
  Sender: FDA-Public Use
  Company Number: DE-MYLANLABS-14X-062-1174671-00

PATIENT
  Age: 19 Year
  Sex: Female

DRUGS (5)
  1. KLACID 250 MG FILMTABLETTA [Suspect]
     Active Substance: CLARITHROMYCIN
     Indication: PERTUSSIS
     Dosage: UNK
     Dates: end: 20140321
  2. OLANZAPIN [Concomitant]
     Active Substance: OLANZAPINE
     Indication: PRODUCT USED FOR UNKNOWN INDICATION
  3. LORAZEPAM. [Concomitant]
     Active Substance: LORAZEPAM
     Indication: PRODUCT USED FOR UNKNOWN INDICATION
  4. YELLOW FEVER VACCINE NOS [Concomitant]
     Active Substance: YELLOW FEVER VIRUS STRAIN 17D-204 LIVE ANTIGEN
     Indication: PRODUCT USED FOR UNKNOWN INDICATION
     Dosage: UNK
     Dates: start: 201403
  5. KLACID 250 MG FILMTABLETTA [Suspect]
     Active Substance: CLARITHROMYCIN
     Indication: TONSILLITIS

REACTIONS (5)
  - Psychotic disorder [Not Recovered/Not Resolved]
  - Autonomic neuropathy [Unknown]
  - Schizophrenia [Recovering/Resolving]
  - Anogenital warts [Recovering/Resolving]
  - Weight decreased [Unknown]

NARRATIVE: CASE EVENT DATE: 2014
